FAERS Safety Report 12828001 (Version 1)
Quarter: 2016Q4

REPORT INFORMATION
  Report Type: Spontaneous
  Country: IL (occurrence: IL)
  Receive Date: 20161007
  Receipt Date: 20161007
  Transmission Date: 20170207
  Serious: Yes (Death, Hospitalization)
  Sender: FDA-Public Use
  Company Number: IL-JNJFOC-20160929413

PATIENT
  Age: 66 Year
  Sex: Male

DRUGS (1)
  1. IMBRUVICA [Suspect]
     Active Substance: IBRUTINIB
     Indication: CHRONIC LYMPHOCYTIC LEUKAEMIA
     Route: 048
     Dates: start: 201602

REACTIONS (7)
  - Febrile neutropenia [Unknown]
  - Confusional state [Unknown]
  - Arthralgia [Unknown]
  - Richter^s syndrome [Fatal]
  - Seizure [Unknown]
  - Subarachnoid haemorrhage [Unknown]
  - Pancytopenia [Unknown]
